FAERS Safety Report 21160374 (Version 2)
Quarter: 2022Q4

REPORT INFORMATION
  Report Type: Spontaneous
  Country: US (occurrence: US)
  Receive Date: 20220802
  Receipt Date: 20221008
  Transmission Date: 20230112
  Serious: No
  Sender: FDA-Public Use
  Company Number: US-MICRO LABS LIMITED-ML2022-03312

PATIENT
  Age: 88 Year
  Sex: Male

DRUGS (3)
  1. METHENAMINE [Suspect]
     Active Substance: METHENAMINE
     Indication: Urinary tract infection
     Dosage: TWICE A DAY USUALLY IN THE MORNING AND THEN IN THE EVENING AND ALWAYS WITH FOOD.
  2. METHENAMINE [Suspect]
     Active Substance: METHENAMINE
     Dosage: PATIENT WAS GETTING METHENAMINE FROM ANOTHER INDIAN MANUFACTURER AUROBINDO
  3. VITAMIN C [Concomitant]
     Active Substance: ASCORBIC ACID

REACTIONS (3)
  - Product taste abnormal [Unknown]
  - Constipation [Unknown]
  - Diarrhoea [Unknown]
